FAERS Safety Report 11441852 (Version 1)
Quarter: 2015Q3

REPORT INFORMATION
  Report Type: Spontaneous
  Country: US (occurrence: US)
  Receive Date: 20150901
  Receipt Date: 20150901
  Transmission Date: 20151125
  Serious: No
  Sender: FDA-Public Use
  Company Number: US-CELGENEUS-USA-2015072510

PATIENT
  Sex: Female

DRUGS (1)
  1. OTEZLA [Suspect]
     Active Substance: APREMILAST
     Indication: PSORIASIS
     Dosage: 10-20-30MG
     Route: 048

REACTIONS (5)
  - Feeling abnormal [Unknown]
  - Rash pruritic [Unknown]
  - Nausea [Unknown]
  - Feeling hot [Unknown]
  - Back pain [Unknown]
